FAERS Safety Report 8587540-9 (Version None)
Quarter: 2012Q3

REPORT INFORMATION
  Report Type: 
  Country: None (occurrence: None)
  Receive Date: 20120810
  Receipt Date: 20120803
  Transmission Date: 20120928
  Serious: Yes (Other)
  Sender: FDA-Public Use
  Company Number: BR-ALLERGAN-1210695US

PATIENT
  Sex: Female

DRUGS (5)
  1. METAMIZOLE SODIUM W/ ADIFENINA HCL, PROMETHAZINE HCL [Concomitant]
     Indication: PRODUCT USED FOR UNKNOWN INDICATION
  2. DIPYRONE TAB [Concomitant]
     Indication: PRODUCT USED FOR UNKNOWN INDICATION
  3. PREDNISOLONE ACETATE (PRED FORTE) [Suspect]
     Indication: CORNEAL TRANSPLANT
     Dosage: 2 GTT, Q3HR
     Route: 047
     Dates: start: 20120722
  4. PROPRANOLOL [Concomitant]
     Indication: PRODUCT USED FOR UNKNOWN INDICATION
  5. PREDNISONE TAB [Concomitant]
     Indication: PRODUCT USED FOR UNKNOWN INDICATION

REACTIONS (3)
  - BONE PAIN [None]
  - NEURALGIA [None]
  - GAIT DISTURBANCE [None]
